FAERS Safety Report 10340208 (Version 2)
Quarter: 2014Q3

REPORT INFORMATION
  Report Type: Spontaneous
  Country: BR (occurrence: BR)
  Receive Date: 20140724
  Receipt Date: 20140905
  Transmission Date: 20150326
  Serious: Yes (Other)
  Sender: FDA-Public Use
  Company Number: BR-NAPPMUNDI-GBR-2014-0019594

PATIENT
  Age: 79 Year
  Sex: Female
  Weight: 57 kg

DRUGS (11)
  1. CITALOPRAM [Concomitant]
     Active Substance: CITALOPRAM HYDROBROMIDE
     Dosage: 1 TABLET, DAILY
     Route: 048
  2. SUPERA [Concomitant]
     Indication: OSTEOPOROSIS
     Dosage: 1 TABLET, WEEKLY
     Route: 048
  3. VITAMIN C [Concomitant]
     Active Substance: ASCORBIC ACID
     Dosage: 1 TABLET, DAILY
     Route: 048
  4. SCAFLAM [Concomitant]
     Active Substance: NIMESULIDE
     Indication: BACK PAIN
     Dosage: 1 TABLET, PRN
     Route: 048
  5. SYNTHROID [Concomitant]
     Active Substance: LEVOTHYROXINE SODIUM
     Indication: HYPOTHYROIDISM
     Dosage: 25 MG, DAILY
     Route: 048
  6. OXYCODONE HCL PR TABLET 10 MG [Suspect]
     Active Substance: OXYCODONE HYDROCHLORIDE
     Indication: MYALGIA
     Dosage: 1 TABLET, Q12H
     Route: 048
     Dates: start: 20140706, end: 20140707
  7. OMEPRAZOLE. [Concomitant]
     Active Substance: OMEPRAZOLE
     Indication: ABDOMINAL PAIN UPPER
     Dosage: 1 TABLET, DAILY
     Route: 048
  8. DICLOFENAC [Concomitant]
     Active Substance: DICLOFENAC
     Indication: BACK PAIN
     Dosage: UNK, PRN
     Route: 061
  9. LORAX                              /00273201/ [Concomitant]
     Indication: SLEEP DISORDER
     Dosage: 1 TABLET, DAILY
     Route: 048
  10. RIVOTRIL [Concomitant]
     Active Substance: CLONAZEPAM
     Indication: SLEEP DISORDER
     Dosage: 2.5 MG, TID
     Route: 048
  11. CALCIO                             /00751501/ [Concomitant]
     Indication: OSTEOPOROSIS
     Dosage: 1 TABLET, DAILY
     Route: 048

REACTIONS (10)
  - Nightmare [Recovered/Resolved]
  - Insomnia [Recovered/Resolved]
  - Diplopia [Recovered/Resolved]
  - Hyperhidrosis [Recovered/Resolved]
  - Malaise [Recovered/Resolved]
  - Hallucination [Recovered/Resolved]
  - Vomiting [Recovered/Resolved]
  - Confusional state [Recovered/Resolved]
  - Nausea [Recovered/Resolved]
  - Dizziness [Recovering/Resolving]

NARRATIVE: CASE EVENT DATE: 20140706
